FAERS Safety Report 5284262-7 (Version None)
Quarter: 2007Q2

REPORT INFORMATION
  Report Type: 
  Country: None (occurrence: None)
  Receive Date: 20070403
  Receipt Date: 20061220
  Transmission Date: 20071010
  Serious: Yes (Hospitalization, Other)
  Sender: FDA-Public Use
  Company Number: US-PFIZER INC-2005045644

PATIENT
  Sex: Female
  Weight: 63.5 kg

DRUGS (6)
  1. DIDREX [Suspect]
     Indication: DEPRESSION
     Route: 048
  2. DIDREX [Suspect]
     Indication: ATTENTION DEFICIT/HYPERACTIVITY DISORDER
  3. ALL OTHER THERAPEUTIC PRODUCTS [Suspect]
     Indication: ILL-DEFINED DISORDER
     Route: 030
  4. LEVOXYL [Concomitant]
     Route: 065
  5. ZOCOR [Concomitant]
     Route: 065
  6. RESTORIL [Concomitant]
     Route: 065

REACTIONS (20)
  - APATHY [None]
  - ATTENTION DEFICIT/HYPERACTIVITY DISORDER [None]
  - BLOOD CHOLESTEROL INCREASED [None]
  - CONSTIPATION [None]
  - DEPRESSION [None]
  - DRUG SCREEN POSITIVE [None]
  - DYSKINESIA [None]
  - FEELING ABNORMAL [None]
  - HEADACHE [None]
  - HYPERTHYROIDISM [None]
  - HYPOTHYROIDISM [None]
  - LOSS OF CONSCIOUSNESS [None]
  - NAUSEA [None]
  - NERVOUSNESS [None]
  - NONSPECIFIC REACTION [None]
  - PAIN [None]
  - SINUS DISORDER [None]
  - SOMNOLENCE [None]
  - THYROID DISORDER [None]
  - VISION BLURRED [None]
